FAERS Safety Report 9297789 (Version 1)
Quarter: 2013Q2

REPORT INFORMATION
  Report Type: Report from Study
  Country: BR (occurrence: BR)
  Receive Date: 20130520
  Receipt Date: 20130520
  Transmission Date: 20140414
  Serious: Yes (Hospitalization, Other)
  Sender: FDA-Public Use
  Company Number: PHHY2013BR049580

PATIENT
  Age: 77 Year
  Sex: Male
  Weight: 90 kg

DRUGS (1)
  1. DIOVAN TRIPLE [Suspect]
     Indication: HYPERTENSION
     Dosage: 1 DF(160/25/10MG), DAILY
     Route: 048

REACTIONS (7)
  - Pneumonia [Recovered/Resolved]
  - Infarction [Recovered/Resolved]
  - Nervousness [Recovering/Resolving]
  - Weight decreased [Not Recovered/Not Resolved]
  - Hernia [Unknown]
  - Cardiovascular disorder [Unknown]
  - Anxiety [Recovering/Resolving]
